FAERS Safety Report 11982243 (Version 1)
Quarter: 2016Q1

REPORT INFORMATION
  Report Type: Spontaneous
  Country: US (occurrence: US)
  Receive Date: 20160201
  Receipt Date: 20160201
  Transmission Date: 20160526
  Serious: No
  Sender: FDA-Public Use
  Company Number: US-ASTRAZENECA-2016SE06119

PATIENT
  Sex: Male
  Weight: 108.9 kg

DRUGS (6)
  1. NOVOLIN INSULIN [Concomitant]
  2. BYDUREON [Suspect]
     Active Substance: EXENATIDE
     Indication: TYPE 2 DIABETES MELLITUS
     Route: 058
  3. CRESTOR [Suspect]
     Active Substance: ROSUVASTATIN CALCIUM
     Route: 048
  4. HUMALOG [Concomitant]
     Active Substance: INSULIN LISPRO
  5. LISINOPRIL. [Concomitant]
     Active Substance: LISINOPRIL
  6. FENOFIBRATE. [Concomitant]
     Active Substance: FENOFIBRATE

REACTIONS (3)
  - Injection site pruritus [Not Recovered/Not Resolved]
  - Weight decreased [Unknown]
  - Injection site mass [Not Recovered/Not Resolved]
